FAERS Safety Report 8438389-9 (Version None)
Quarter: 2012Q2

REPORT INFORMATION
  Report Type: 
  Country: None (occurrence: None)
  Receive Date: 20120614
  Receipt Date: 20120530
  Transmission Date: 20120825
  Serious: Yes (Hospitalization)
  Sender: FDA-Public Use
  Company Number: JP-SPECTRUM PHARMACEUTICALS, INC.-11-Z-JP-00374

PATIENT

DRUGS (13)
  1. ZEVALIN [Suspect]
     Dosage: 130 MBQ, SINGLE
     Route: 042
     Dates: start: 20091117, end: 20091117
  2. RITUXAN [Suspect]
     Dosage: 400 MG, SINGLE
     Route: 041
     Dates: start: 20091117, end: 20091117
  3. ISODINE [Concomitant]
     Indication: PRODUCT USED FOR UNKNOWN INDICATION
     Dosage: UNK
     Route: 065
     Dates: start: 20091126, end: 20091129
  4. RITUXAN [Suspect]
     Indication: FOLLICLE CENTRE LYMPHOMA, FOLLICULAR GRADE I, II, III STAGE I
     Dosage: 400 MG, SINGLE
     Route: 041
     Dates: start: 20091124, end: 20091124
  5. PYRINAZIN [Concomitant]
     Indication: PRODUCT USED FOR UNKNOWN INDICATION
     Dosage: UNK
     Route: 065
     Dates: start: 20091117, end: 20091117
  6. LEVOFLOXACIN [Concomitant]
     Indication: PRODUCT USED FOR UNKNOWN INDICATION
     Dosage: UNK
     Route: 065
     Dates: start: 20091117, end: 20091126
  7. PL GRAN. [Concomitant]
     Indication: NEUTROPHIL COUNT DECREASED
     Dosage: UNK
     Route: 065
     Dates: start: 20100112, end: 20100114
  8. BIO THREE                          /01068501/ [Concomitant]
     Indication: PRODUCT USED FOR UNKNOWN INDICATION
     Dosage: UNK
     Route: 065
     Dates: start: 20091117, end: 20091126
  9. AMLODIPINE [Concomitant]
     Indication: HYPERTENSION
     Dosage: UNK
     Route: 065
     Dates: start: 20100118, end: 20100217
  10. ZEVALIN [Suspect]
     Indication: FOLLICLE CENTRE LYMPHOMA, FOLLICULAR GRADE I, II, III STAGE I
     Dosage: 898 MBQ, SINGLE
     Route: 042
     Dates: start: 20091124, end: 20091124
  11. RESTAMIN [Concomitant]
     Indication: PRODUCT USED FOR UNKNOWN INDICATION
     Dosage: UNK
     Route: 065
     Dates: start: 20091117, end: 20091117
  12. PURSENNID                          /00571901/ [Concomitant]
     Indication: PRODUCT USED FOR UNKNOWN INDICATION
     Dosage: UNK
     Route: 065
     Dates: start: 20091117, end: 20091122
  13. SP                                 /00312001/ [Concomitant]
     Indication: PRODUCT USED FOR UNKNOWN INDICATION
     Dosage: UNK
     Route: 065
     Dates: start: 20100112, end: 20100114

REACTIONS (4)
  - NEUTROPHIL COUNT DECREASED [None]
  - CERVIX CARCINOMA STAGE I [None]
  - PLATELET COUNT DECREASED [None]
  - PYREXIA [None]
